FAERS Safety Report 25769190 (Version 1)
Quarter: 2025Q3

REPORT INFORMATION
  Report Type: Spontaneous
  Country: US (occurrence: US)
  Receive Date: 20250905
  Receipt Date: 20250905
  Transmission Date: 20251020
  Serious: Yes (Disabling)
  Sender: ESPERION THERAPEUTICS
  Company Number: US-ESPERIONTHERAPEUTICS-2025USA01125

PATIENT
  Sex: Male

DRUGS (1)
  1. NEXLIZET [Suspect]
     Active Substance: BEMPEDOIC ACID\EZETIMIBE
     Indication: Blood cholesterol increased
     Route: 065
     Dates: start: 20250728, end: 20250810

REACTIONS (2)
  - Tendonitis [Not Recovered/Not Resolved]
  - Headache [Not Recovered/Not Resolved]
